FAERS Safety Report 4608615-2 (Version None)
Quarter: 2005Q1

REPORT INFORMATION
  Report Type: 
  Country: None (occurrence: None)
  Receive Date: 20050315
  Receipt Date: 20050303
  Transmission Date: 20050727
  Serious: Yes (Hospitalization)
  Sender: FDA-Public Use
  Company Number: JP-BRISTOL-MYERS SQUIBB COMPANY-12885794

PATIENT
  Age: 61 Year
  Sex: Male

DRUGS (4)
  1. MAXIPIME [Suspect]
     Indication: FEBRILE NEUTROPENIA
     Route: 041
     Dates: start: 20050218, end: 20050226
  2. PYRINAZIN [Concomitant]
     Route: 048
  3. ALOSITOL [Concomitant]
     Route: 048
  4. ALBUMIN (HUMAN) [Concomitant]
     Route: 042

REACTIONS (1)
  - STEVENS-JOHNSON SYNDROME [None]
